FAERS Safety Report 8628584 (Version 2)
Quarter: 2012Q4

REPORT INFORMATION
  Report Type: 
  Country: US (occurrence: US)
  Receive Date: 20120621
  Receipt Date: 20121030
  Transmission Date: 20130627
  Serious: Yes (Hospitalization, Other)
  Sender: FDA-Public Use
  Company Number: US-BAYER-2012-058943

PATIENT
  Age: 24 Year
  Sex: Female
  Weight: 68.48 kg

DRUGS (4)
  1. YASMIN [Suspect]
     Indication: CONTRACEPTION
     Dosage: UNK
     Dates: start: 200310, end: 200712
  2. MULTIVITAMIN [Concomitant]
     Dosage: 1 pill per day
  3. ANTI-ASTHMATICS [Concomitant]
     Dosage: UNK
     Dates: start: 1996
  4. NSAID^S [Concomitant]

REACTIONS (5)
  - Gallbladder disorder [None]
  - Biliary dyskinesia [None]
  - Pain [None]
  - Injury [None]
  - Pain [None]
